FAERS Safety Report 6983219-5 (Version None)
Quarter: 2010Q3

REPORT INFORMATION
  Report Type: 
  Country: None (occurrence: None)
  Receive Date: 20100914
  Receipt Date: 20100723
  Transmission Date: 20110219
  Serious: No
  Sender: FDA-Public Use
  Company Number: US-PFIZER INC-2010092986

PATIENT
  Sex: Female

DRUGS (3)
  1. LYRICA [Suspect]
     Dosage: UNK
  2. ATENOLOL [Suspect]
     Dosage: UNK
  3. ZANAFLEX [Suspect]
     Dosage: UNK

REACTIONS (3)
  - DRY MOUTH [None]
  - OEDEMA PERIPHERAL [None]
  - TOOTH LOSS [None]
